FAERS Safety Report 20133833 (Version 1)
Quarter: 2021Q4

REPORT INFORMATION
  Report Type: Report from Study
  Country: CA (occurrence: CA)
  Receive Date: 20211201
  Receipt Date: 20211201
  Transmission Date: 20220304
  Serious: Yes (Other)
  Sender: FDA-Public Use
  Company Number: CA-JNJFOC-20211157648

PATIENT
  Age: 11 Year
  Sex: Male
  Weight: 35 kg

DRUGS (2)
  1. REMICADE [Suspect]
     Active Substance: INFLIXIMAB
     Indication: Colitis ulcerative
     Dosage: ON 24-NOV-2021, PATIENT RECEIVED 7TH INFUSION AT A DOSE OF 300MG OF REMICADE AND PARTIAL MAYO WAS CO
     Route: 042
     Dates: start: 20210309
  2. TYLENOL [Concomitant]
     Active Substance: ACETAMINOPHEN
     Indication: Premedication
     Route: 065
     Dates: start: 2021

REACTIONS (2)
  - Haematochezia [Unknown]
  - Headache [Unknown]

NARRATIVE: CASE EVENT DATE: 20210101
